FAERS Safety Report 15888402 (Version 2)
Quarter: 2019Q1

REPORT INFORMATION
  Report Type: Report from Study
  Country: CA (occurrence: CA)
  Receive Date: 20190130
  Receipt Date: 20190227
  Transmission Date: 20190417
  Serious: Yes (Other)
  Sender: FDA-Public Use
  Company Number: CA-B.I. PHARMACEUTICALS,INC./RIDGEFIELD-2018-BI-026014

PATIENT
  Age: 41 Year
  Sex: Male

DRUGS (1)
  1. GILOTRIF [Suspect]
     Active Substance: AFATINIB
     Indication: LUNG CANCER METASTATIC
     Route: 048
     Dates: start: 20180503

REACTIONS (14)
  - Toxicity to various agents [Not Recovered/Not Resolved]
  - Drug ineffective [Not Recovered/Not Resolved]
  - Dysphagia [Recovered/Resolved with Sequelae]
  - Stomatitis [Unknown]
  - Aphthous ulcer [Not Recovered/Not Resolved]
  - Rash [Recovered/Resolved]
  - Feeding disorder [Unknown]
  - Rash [Not Recovered/Not Resolved]
  - Rash [Unknown]
  - Diarrhoea [Unknown]
  - Vomiting [Unknown]
  - Rash generalised [Unknown]
  - Insomnia [Unknown]
  - Acne [Unknown]

NARRATIVE: CASE EVENT DATE: 20180512
